FAERS Safety Report 9999051 (Version 1)
Quarter: 2014Q1

REPORT INFORMATION
  Report Type: Report from Study
  Country: MX (occurrence: MX)
  Receive Date: 20140312
  Receipt Date: 20140312
  Transmission Date: 20141002
  Serious: Yes (Other)
  Sender: FDA-Public Use
  Company Number: MX-ROCHE-1361054

PATIENT
  Age: 40 Year
  Sex: Female
  Weight: 55 kg

DRUGS (3)
  1. XELODA [Suspect]
     Indication: GASTRIC CANCER
     Dosage: CYCLE 21 DAYS, 6 CYCLES PROGRAMMED
     Route: 065
  2. EPIRUBICIN [Suspect]
     Indication: GASTRIC CANCER
     Route: 065
  3. OXALIPLATIN [Suspect]
     Indication: GASTRIC CANCER
     Route: 065

REACTIONS (3)
  - Nausea [Unknown]
  - Diarrhoea [Unknown]
  - Disease progression [Unknown]
